FAERS Safety Report 8430863-4 (Version None)
Quarter: 2012Q2

REPORT INFORMATION
  Report Type: 
  Country: None (occurrence: None)
  Receive Date: 20120323
  Receipt Date: 20110829
  Transmission Date: 20120825
  Serious: Yes (Hospitalization)
  Sender: FDA-Public Use
  Company Number: 163-21880-11083382

PATIENT
  Age: 71 Year
  Sex: Male

DRUGS (8)
  1. ALLOPURINOL [Concomitant]
  2. BABY ASA (ACETYLSALICYLIC ACID) (UNKNOWN) [Concomitant]
  3. REVLIMID [Suspect]
     Indication: MULTIPLE MYELOMA
     Dosage: 25 MG, DAILY X21 D THEN 7 DAYS OFF, PO
     Route: 048
     Dates: start: 20110804
  4. MVI (MIV) (UNKNOWN) [Concomitant]
  5. ENALAPRIL MALEATE [Concomitant]
  6. FENTANYL-100 [Concomitant]
  7. HYDROCORTISONE [Concomitant]
  8. VIT B COMPLEX (VITAMIN-B-KOMPLEX STANDARD) (UNKNOWN) [Concomitant]

REACTIONS (2)
  - DEEP VEIN THROMBOSIS [None]
  - PULMONARY EMBOLISM [None]
